FAERS Safety Report 6173548-X (Version None)
Quarter: 2009Q2

REPORT INFORMATION
  Report Type: 
  Country: None (occurrence: None)
  Receive Date: 20090430
  Receipt Date: 20090423
  Transmission Date: 20091009
  Serious: Yes (Death)
  Sender: FDA-Public Use
  Company Number: B0571387A

PATIENT
  Sex: Male

DRUGS (5)
  1. ARIXTRA [Suspect]
     Indication: DRUG USE FOR UNKNOWN INDICATION
     Dosage: .5MG PER DAY
     Route: 058
     Dates: start: 20090318, end: 20090322
  2. SKENAN [Concomitant]
     Route: 065
  3. ACTISKENAN [Concomitant]
     Route: 065
  4. DEPAMIDE [Concomitant]
     Route: 065
  5. MEDROL [Concomitant]
     Route: 065

REACTIONS (8)
  - ALTERED STATE OF CONSCIOUSNESS [None]
  - BRAIN COMPRESSION [None]
  - BRAIN HERNIATION [None]
  - CEREBRAL HAEMORRHAGE [None]
  - FACE INJURY [None]
  - FALL [None]
  - HYPOREFLEXIA [None]
  - MYDRIASIS [None]
